FAERS Safety Report 21775724 (Version 6)
Quarter: 2023Q4

REPORT INFORMATION
  Report Type: Spontaneous
  Country: US (occurrence: None)
  Receive Date: 20221226
  Receipt Date: 20231127
  Transmission Date: 20240109
  Serious: Yes (Hospitalization)
  Sender: FDA-Public Use
  Company Number: US-ROCHE-3246152

PATIENT
  Age: 7 Year
  Sex: Male

DRUGS (5)
  1. HEMLIBRA [Suspect]
     Active Substance: EMICIZUMAB-KXWH
     Indication: Factor VIII deficiency
     Dosage: STRENGTH: 60 MG/0.4 ML
     Route: 058
     Dates: start: 20210113
  2. HEMLIBRA [Suspect]
     Active Substance: EMICIZUMAB-KXWH
     Route: 058
  3. HEMLIBRA [Suspect]
     Active Substance: EMICIZUMAB-KXWH
     Dosage: STRENGTH: 60 MG/0.4 ML
     Route: 058
     Dates: start: 202211
  4. HEMLIBRA [Suspect]
     Active Substance: EMICIZUMAB-KXWH
     Dosage: STRENGTH: 60 MG/0.4 ML
     Route: 058
     Dates: start: 20221121
  5. HEMLIBRA [Suspect]
     Active Substance: EMICIZUMAB-KXWH
     Dosage: STRENGTH: 60 MG/0.4 ML
     Route: 058
     Dates: start: 202211

REACTIONS (9)
  - Weight increased [Unknown]
  - Epistaxis [Unknown]
  - Somnolence [Unknown]
  - Pyrexia [Recovered/Resolved]
  - Cough [Unknown]
  - Epistaxis [Recovered/Resolved]
  - Scratch [Unknown]
  - Eczema [Unknown]
  - Head injury [Unknown]

NARRATIVE: CASE EVENT DATE: 20230723
